FAERS Safety Report 24226171 (Version 1)
Quarter: 2024Q3

REPORT INFORMATION
  Report Type: Spontaneous
  Country: JP (occurrence: JP)
  Receive Date: 20240820
  Receipt Date: 20240820
  Transmission Date: 20241017
  Serious: Yes (Hospitalization)
  Sender: CELLTRION
  Company Number: JP-CELLTRION INC.-2024JP019591

PATIENT

DRUGS (6)
  1. BEVACIZUMAB [Suspect]
     Active Substance: BEVACIZUMAB
     Indication: Lung carcinoma cell type unspecified recurrent
     Dosage: 4 COURSES IN THE PAST 5 MONTHS (SECOND-LINE THERAPY)
  2. BEVACIZUMAB [Suspect]
     Active Substance: BEVACIZUMAB
     Dosage: FIRST CYCLE OF MAINTENANCE THERAPY (10 DAYS BEFORE ADMISSION)
  3. ATEZOLIZUMAB [Suspect]
     Active Substance: ATEZOLIZUMAB
     Indication: Lung carcinoma cell type unspecified recurrent
     Dosage: 4 COURSES IN THE PAST 5 MONTHS (SECOND-LINE THERAPY)
  4. ATEZOLIZUMAB [Suspect]
     Active Substance: ATEZOLIZUMAB
     Dosage: FIRST CYCLE OF MAINTENANCE THERAPY (10 DAYS BEFORE ADMISSION)
  5. PACLITAXEL [Suspect]
     Active Substance: PACLITAXEL
     Indication: Lung carcinoma cell type unspecified recurrent
     Dosage: 4 COURSES IN THE PAST 5 MONTHS (SECOND-LINE THERAPY)
  6. CARBOPLATIN [Suspect]
     Active Substance: CARBOPLATIN
     Indication: Lung carcinoma cell type unspecified recurrent
     Dosage: 4 COURSES IN THE PAST 5 MONTHS (SECOND-LINE THERAPY)

REACTIONS (2)
  - Stress cardiomyopathy [Recovered/Resolved]
  - Product use issue [Unknown]
